FAERS Safety Report 5914547-X (Version None)
Quarter: 2008Q4

REPORT INFORMATION
  Report Type: 
  Country: None (occurrence: None)
  Receive Date: 20081008
  Receipt Date: 20080924
  Transmission Date: 20090506
  Serious: Yes (Hospitalization)
  Sender: FDA-Public Use
  Company Number: DEP_00163_2008

PATIENT
  Age: 46 Year
  Sex: Male

DRUGS (3)
  1. METFORMIN HCL [Suspect]
     Dosage: (56 G 1X, NOT THE PRESCRIBED AMOUNT)
  2. RAMIPRIL [Suspect]
     Dosage: (35 MG 1X, NOT THE PRESCRIBED AMOUNT)
  3. ALCOHOL (ALCOHOL - ETHANOL) [Suspect]
     Dosage: (500 MG 1X, NOT THE PRESCRIBED AMOUNT)

REACTIONS (32)
  - ABDOMINAL PAIN LOWER [None]
  - ACCIDENT [None]
  - ALCOHOL USE [None]
  - APNOEA [None]
  - BLOOD GLUCOSE INCREASED [None]
  - BLOOD PRESSURE DIASTOLIC DECREASED [None]
  - CARDIAC ARREST [None]
  - COMA [None]
  - COMPARTMENT SYNDROME [None]
  - CONTINUOUS HAEMODIAFILTRATION [None]
  - DEHYDRATION [None]
  - DIALYSIS [None]
  - DIARRHOEA [None]
  - HAEMODIALYSIS [None]
  - HYPOTENSION [None]
  - HYPOTHERMIA [None]
  - LACTIC ACIDOSIS [None]
  - LEG AMPUTATION [None]
  - METABOLIC ACIDOSIS [None]
  - NO THERAPEUTIC RESPONSE [None]
  - OVERDOSE [None]
  - PAIN IN EXTREMITY [None]
  - PALLOR [None]
  - PARTIAL SEIZURES [None]
  - POST PROCEDURAL COMPLICATION [None]
  - RENAL FAILURE ACUTE [None]
  - RESPIRATORY RATE INCREASED [None]
  - RHABDOMYOLYSIS [None]
  - SENSORY LOSS [None]
  - SWELLING [None]
  - TACHYCARDIA [None]
  - TACHYPNOEA [None]
